FAERS Safety Report 8884924 (Version 1)
Quarter: 2012Q4

REPORT INFORMATION
  Report Type: 
  Country: US (occurrence: US)
  Receive Date: 20121102
  Receipt Date: 20121102
  Transmission Date: 20130627
  Serious: No
  Sender: FDA-Public Use
  Company Number: US-VERTEX PHARMACEUTICAL INC.-AE-2012-000158

PATIENT

DRUGS (8)
  1. INCIVEK [Suspect]
     Indication: HEPATITIS C
     Dosage: 750 mg, UNK
     Route: 048
     Dates: start: 20111230, end: 20120102
  2. RIBAVIRIN [Suspect]
     Indication: HEPATITIS C
     Dosage: UNK
     Route: 048
     Dates: start: 20111230, end: 20120702
  3. RIBAVIRIN [Suspect]
     Route: 048
     Dates: start: 20111230
  4. PEGASYS [Suspect]
     Indication: HEPATITIS C
     Dosage: 180 ?g, UNK
     Route: 058
     Dates: start: 20111230, end: 20120702
  5. PAXIL [Concomitant]
  6. INDERAL [Concomitant]
  7. CLONAZEPAM [Concomitant]
  8. TYLENOL [Concomitant]

REACTIONS (12)
  - Headache [Recovered/Resolved]
  - Dry eye [Not Recovered/Not Resolved]
  - Decreased appetite [Not Recovered/Not Resolved]
  - Memory impairment [Recovered/Resolved]
  - Personality change [Recovered/Resolved]
  - Balance disorder [Not Recovered/Not Resolved]
  - Head injury [Not Recovered/Not Resolved]
  - Vision blurred [Not Recovered/Not Resolved]
  - Skin exfoliation [Recovered/Resolved]
  - Rash [Recovered/Resolved]
  - Pruritus generalised [Recovered/Resolved]
  - Diarrhoea [Recovered/Resolved]
